FAERS Safety Report 21958235 (Version 3)
Quarter: 2023Q1

REPORT INFORMATION
  Report Type: Spontaneous
  Country: GB (occurrence: GB)
  Receive Date: 20230206
  Receipt Date: 20230227
  Transmission Date: 20230417
  Serious: Yes (Death, Other)
  Sender: FDA-Public Use
  Company Number: None

PATIENT
  Age: 75 Year
  Sex: Male

DRUGS (12)
  1. CIPROFLOXACIN [Suspect]
     Active Substance: CIPROFLOXACIN
     Indication: Product used for unknown indication
     Dosage: 200 MILLIGRAM, BID (SWITCHED TO ORAL)
     Route: 042
  2. LANSOPRAZOLE [Suspect]
     Active Substance: LANSOPRAZOLE
     Indication: Product used for unknown indication
     Dosage: 15 MILLIGRAM, QD (ONE TO BE TAKEN EACH MORNING)
     Route: 048
  3. APIXABAN [Concomitant]
     Active Substance: APIXABAN
     Dosage: 2.5 MILLIGRAM, BID (ONE TO BE TAKEN TWICE A DAY)
     Route: 048
  4. ATORVASTATIN [Concomitant]
     Active Substance: ATORVASTATIN
     Dosage: 20 MILLIGRAM, QD (ONE TO BE TAKEN EACH DAY)
     Route: 048
  5. BISOPROLOL [Concomitant]
     Active Substance: BISOPROLOL
     Indication: Atrial fibrillation
     Dosage: 5 MILLIGRAM, QD (ONE TO BE TAKEN EACH DAY)
     Route: 065
  6. EPLERENONE [Concomitant]
     Active Substance: EPLERENONE
     Dosage: 25 MILLIGRAM (25MG ONE ON ALTERNATIVE DAYS)
     Route: 048
  7. FINASTERIDE [Concomitant]
     Active Substance: FINASTERIDE
     Dosage: 5 MILLIGRAM, QD (ONE TO BE TAKEN EACH DAY)
     Route: 048
  8. FUROSEMIDE [Concomitant]
     Active Substance: FUROSEMIDE
     Dosage: 40 MILLIGRAM, QD (ONE TO BE TAKEN EACH MORNING)
     Route: 048
     Dates: end: 20230131
  9. LOSARTAN [Concomitant]
     Active Substance: LOSARTAN
     Dosage: 25 MILLIGRAM, QD (ONE TO BE TAKEN EACH DAY )
     Route: 048
  10. TAMSULOSIN [Concomitant]
     Active Substance: TAMSULOSIN
     Dosage: 400 MICROGRAM, QD (MODIFIED-RELEASE CAPSULES ONE TO BE TAKEN EACH DAY)
     Route: 048
  11. RAMIPRIL [Concomitant]
     Active Substance: RAMIPRIL
     Dosage: UNK
     Route: 065
  12. ESOMEPRAZOLE [Concomitant]
     Active Substance: ESOMEPRAZOLE
     Dosage: 40 MILLIGRAM, QD
     Route: 042

REACTIONS (1)
  - Clostridium difficile infection [Fatal]

NARRATIVE: CASE EVENT DATE: 20221210
